FAERS Safety Report 5999920-6 (Version None)
Quarter: 2008Q4

REPORT INFORMATION
  Report Type: 
  Country: None (occurrence: None)
  Receive Date: 20081215
  Receipt Date: 20081204
  Transmission Date: 20090506
  Serious: Yes (Other)
  Sender: FDA-Public Use
  Company Number: PHHY2008MX30807

PATIENT
  Sex: Female

DRUGS (2)
  1. DIOVAN HCT [Suspect]
     Indication: HYPERTENSION
     Dosage: 2 DF, QD
     Route: 048
     Dates: start: 20051101
  2. CADUET [Concomitant]
     Indication: HYPERTENSION
     Dosage: 0.5 TABLET / DAY
     Route: 048

REACTIONS (2)
  - FALL [None]
  - SPINAL FRACTURE [None]
